FAERS Safety Report 6102120-2 (Version None)
Quarter: 2009Q1

REPORT INFORMATION
  Report Type: 
  Country: None (occurrence: None)
  Receive Date: 20090304
  Receipt Date: 20090225
  Transmission Date: 20090719
  Serious: Yes (Death, Hospitalization, Other)
  Sender: FDA-Public Use
  Company Number: US-MERCK-0805USA00699

PATIENT
  Age: 47 Year
  Sex: Female
  Weight: 94 kg

DRUGS (2)
  1. FOSAMAX [Suspect]
     Route: 048
  2. ZOMETA [Suspect]
     Route: 065
     Dates: start: 19970101, end: 20070330

REACTIONS (19)
  - ANAEMIA POSTOPERATIVE [None]
  - BREAST CANCER [None]
  - CELLULITIS [None]
  - DENTAL NECROSIS [None]
  - DRUG INTOLERANCE [None]
  - GASTROINTESTINAL HAEMORRHAGE [None]
  - HAEMORRHAGE [None]
  - HYPOTHYROIDISM [None]
  - INFECTION [None]
  - INTESTINAL FUNCTIONAL DISORDER [None]
  - INTESTINAL OBSTRUCTION [None]
  - LUNG NEOPLASM MALIGNANT [None]
  - OEDEMA MOUTH [None]
  - ORAL PAIN [None]
  - OSTEONECROSIS [None]
  - PERIODONTITIS [None]
  - PEUTZ-JEGHERS SYNDROME [None]
  - PNEUMONIA [None]
  - SWELLING FACE [None]
